FAERS Safety Report 22912356 (Version 3)
Quarter: 2024Q1

REPORT INFORMATION
  Report Type: Report from Study
  Country: US (occurrence: US)
  Receive Date: 20230906
  Receipt Date: 20240104
  Transmission Date: 20240409
  Serious: No
  Sender: FDA-Public Use
  Company Number: US-002147023-NVSC2023US192931

PATIENT
  Sex: Female

DRUGS (2)
  1. COSENTYX [Suspect]
     Active Substance: SECUKINUMAB
     Indication: Product used for unknown indication
     Dosage: 150 MG, QMO
     Route: 058
  2. COSENTYX [Suspect]
     Active Substance: SECUKINUMAB
     Dosage: 300 MG, QMO
     Route: 058

REACTIONS (10)
  - Peripheral swelling [Unknown]
  - Arthralgia [Unknown]
  - Gait disturbance [Unknown]
  - Psoriasis [Unknown]
  - Urinary tract infection [Unknown]
  - Weight increased [Unknown]
  - Blood cholesterol increased [Unknown]
  - Inappropriate schedule of product administration [Unknown]
  - Arthritis [Unknown]
  - Pain in extremity [Unknown]
